FAERS Safety Report 19877276 (Version 1)
Quarter: 2021Q3

REPORT INFORMATION
  Report Type: Spontaneous
  Country: US (occurrence: US)
  Receive Date: 20210924
  Receipt Date: 20210924
  Transmission Date: 20211014
  Serious: No
  Sender: FDA-Public Use
  Company Number: US-CELGENEUS-USA-20210904328

PATIENT
  Age: 51 Year
  Sex: Female

DRUGS (1)
  1. REVLIMID [Suspect]
     Active Substance: LENALIDOMIDE
     Indication: MARGINAL ZONE LYMPHOMA
     Dosage: DOSE : 20 MILLIGRAM     FREQ : OTHER
     Route: 048
     Dates: start: 202105

REACTIONS (2)
  - Contusion [Unknown]
  - Dry skin [Unknown]

NARRATIVE: CASE EVENT DATE: 20210520
